FAERS Safety Report 5143345-2 (Version None)
Quarter: 2006Q4

REPORT INFORMATION
  Report Type: 
  Country: None (occurrence: None)
  Receive Date: 20061030
  Receipt Date: 20061020
  Transmission Date: 20070319
  Serious: Yes (Other)
  Sender: FDA-Public Use
  Company Number: 2006102196

PATIENT
  Age: 54 Year
  Sex: Female

DRUGS (3)
  1. ATORVASTATIN CALCIUM [Suspect]
     Dosage: 20 MG (20 MG, 1 IN 1 D), ORAL
     Route: 048
     Dates: start: 20011231, end: 20060606
  2. LEVOTHYROXINE SODIUM [Concomitant]
  3. DAFALGAN (PARACETAMOL) [Concomitant]

REACTIONS (3)
  - AUTOIMMUNE HEPATITIS [None]
  - BLOOD THYROID STIMULATING HORMONE DECREASED [None]
  - CYTOMEGALOVIRUS TEST POSITIVE [None]
